FAERS Safety Report 4765781-6 (Version None)
Quarter: 2005Q3

REPORT INFORMATION
  Report Type: 
  Country: None (occurrence: None)
  Receive Date: 20050906
  Receipt Date: 20050726
  Transmission Date: 20060218
  Serious: Yes (Other)
  Sender: FDA-Public Use
  Company Number: 2005108721

PATIENT
  Age: 62 Year
  Sex: Male
  Weight: 101 kg

DRUGS (3)
  1. CELECOXIB (CELECOXIB) [Suspect]
     Indication: ILL-DEFINED DISORDER
     Dosage: 400 MG (200 MG, 2 IN 1 D),
  2. TRAZODONE HCL [Suspect]
     Indication: ILL-DEFINED DISORDER
  3. ESOMEPRAZOLE (ESOMEPRAZOLE) [Suspect]
     Indication: ILL-DEFINED DISORDER

REACTIONS (8)
  - BLOOD ALBUMIN DECREASED [None]
  - FACE OEDEMA [None]
  - FATIGUE [None]
  - HAEMATOCRIT DECREASED [None]
  - HYPERTENSION [None]
  - PITTING OEDEMA [None]
  - RENAL INTERSTITIAL FIBROSIS [None]
  - RENAL TUBULAR NECROSIS [None]
